FAERS Safety Report 13708420 (Version 3)
Quarter: 2017Q3

REPORT INFORMATION
  Report Type: Spontaneous
  Country: US (occurrence: US)
  Receive Date: 20170630
  Receipt Date: 20170813
  Transmission Date: 20171127
  Serious: Yes (Death, Hospitalization, Other)
  Sender: FDA-Public Use
  Company Number: US-GLAXOSMITHKLINE-US2017GSK101598

PATIENT
  Age: 72 Year
  Sex: Female

DRUGS (4)
  1. FLOLAN [Suspect]
     Active Substance: EPOPROSTENOL SODIUM
     Indication: PULMONARY ARTERIAL HYPERTENSION
     Dosage: UNK
     Dates: start: 20170303
  2. SILDENAFIL CITRATE. [Concomitant]
     Active Substance: SILDENAFIL CITRATE
  3. FLOLAN [Suspect]
     Active Substance: EPOPROSTENOL SODIUM
     Indication: PULMONARY ARTERIAL HYPERTENSION
     Dosage: 32 DF, CO
     Dates: start: 20100621
  4. FLOLAN [Suspect]
     Active Substance: EPOPROSTENOL SODIUM
     Dosage: 30 DF, CO

REACTIONS (8)
  - Bilevel positive airway pressure [Unknown]
  - Respiratory disorder [Unknown]
  - Nausea [Unknown]
  - Aspiration [Unknown]
  - Dyspnoea [Unknown]
  - Vomiting [Unknown]
  - Endotracheal intubation [Recovered/Resolved]
  - Death [Fatal]

NARRATIVE: CASE EVENT DATE: 201706
